FAERS Safety Report 11115572 (Version 2)
Quarter: 2015Q2

REPORT INFORMATION
  Report Type: Report from Study
  Country: US (occurrence: None)
  Receive Date: 20150513
  Receipt Date: 20150601
  Transmission Date: 20150821
  Serious: Yes (Hospitalization, Other)
  Sender: FDA-Public Use
  Company Number: KAD201504-000832

PATIENT
  Age: 64 Year
  Sex: Male

DRUGS (2)
  1. VIEKIRA PAK [Suspect]
     Active Substance: DASABUVIR\OMBITASVIR\PARITAPREVIR\RITONAVIR
     Indication: HEPATITIS C
     Route: 048
     Dates: start: 20150308, end: 201505
  2. RIBAVIRIN 200 MG TABLETS (RIBAVIRIN) [Suspect]
     Active Substance: RIBAVIRIN
     Indication: HEPATITIS C
     Dosage: 600 MG EVERY AM AND PM; 2 IN 1 DAY
     Route: 048
     Dates: start: 20150308, end: 20150326

REACTIONS (8)
  - Malaise [None]
  - Vision blurred [None]
  - Nausea [None]
  - Anaemia [None]
  - Dizziness [None]
  - Asthenia [None]
  - Encephalopathy [None]
  - Decreased appetite [None]

NARRATIVE: CASE EVENT DATE: 201504
